FAERS Safety Report 13642319 (Version 2)
Quarter: 2018Q1

REPORT INFORMATION
  Report Type: Spontaneous
  Country: PT (occurrence: PT)
  Receive Date: 20170612
  Receipt Date: 20180302
  Transmission Date: 20180508
  Serious: Yes (Disabling)
  Sender: FDA-Public Use
  Company Number: PT-PFIZER INC-2017237287

PATIENT
  Age: 50 Year
  Sex: Female
  Weight: 60 kg

DRUGS (6)
  1. SEROQUEL [Concomitant]
     Active Substance: QUETIAPINE FUMARATE
     Indication: DEPRESSION
     Dosage: 400 MG, 1X/DAY (AT NIGHT)
     Route: 048
     Dates: start: 201612, end: 2017
  2. SERTRALINE [Concomitant]
     Active Substance: SERTRALINE HYDROCHLORIDE
     Indication: DEPRESSION
     Dosage: 100 MG, 1X/DAY (AT BREAKFAST)
     Route: 048
     Dates: start: 201612, end: 2017
  3. VALPROATE SODIUM. [Concomitant]
     Active Substance: VALPROATE SODIUM
     Indication: DEPRESSION
     Dosage: 500 MG, 3X/DAY
     Route: 048
     Dates: start: 201612, end: 2017
  4. CHAMPIX [Suspect]
     Active Substance: VARENICLINE TARTRATE
     Indication: SMOKING CESSATION THERAPY
     Dosage: 0.5 MG, 1X/DAY
     Route: 048
     Dates: start: 201703, end: 201703
  5. CHAMPIX [Suspect]
     Active Substance: VARENICLINE TARTRATE
     Dosage: 1 MG, 1X/DAY
     Route: 048
     Dates: start: 201703, end: 201703
  6. TOPIRAMATO [Concomitant]
     Active Substance: TOPIRAMATE
     Indication: DEPRESSION
     Dosage: 50 MG, 1X/DAY (AT LUNCH)
     Route: 048
     Dates: start: 201612, end: 2017

REACTIONS (5)
  - Condition aggravated [Recovered/Resolved]
  - Cognitive disorder [Recovered/Resolved]
  - Depression [Recovered/Resolved]
  - Psychotic disorder [Recovered/Resolved]
  - Dissociation [Recovered/Resolved]

NARRATIVE: CASE EVENT DATE: 201703
